FAERS Safety Report 11386470 (Version 1)
Quarter: 2015Q3

REPORT INFORMATION
  Report Type: Spontaneous
  Country: AU (occurrence: FR)
  Receive Date: 20150817
  Receipt Date: 20150817
  Transmission Date: 20151125
  Serious: Yes (Other)
  Sender: FDA-Public Use
  Company Number: AU-JNJFOC-20150808534

PATIENT
  Age: 41 Year
  Sex: Female

DRUGS (4)
  1. XARELTO [Suspect]
     Active Substance: RIVAROXABAN
     Indication: HYPERCOAGULATION
     Route: 048
     Dates: start: 20150430, end: 20150528
  2. XARELTO [Suspect]
     Active Substance: RIVAROXABAN
     Indication: HYPERCOAGULATION
     Route: 048
     Dates: start: 201506, end: 2015
  3. XARELTO [Suspect]
     Active Substance: RIVAROXABAN
     Indication: HYPERCOAGULATION
     Route: 048
     Dates: start: 20150420, end: 20150430
  4. VALIUM [Suspect]
     Active Substance: DIAZEPAM
     Indication: INTERVERTEBRAL DISC PROTRUSION
     Route: 065

REACTIONS (12)
  - Serum ferritin decreased [Unknown]
  - Formication [Recovering/Resolving]
  - Adverse event [Recovering/Resolving]
  - Stress [Recovering/Resolving]
  - Blood iron decreased [Unknown]
  - Urine odour abnormal [Unknown]
  - Tongue disorder [Recovering/Resolving]
  - Menorrhagia [Unknown]
  - Fall [Recovering/Resolving]
  - Panic reaction [Recovering/Resolving]
  - Dizziness [Recovering/Resolving]
  - Mental disorder [Unknown]

NARRATIVE: CASE EVENT DATE: 2015
